FAERS Safety Report 4668270-2 (Version None)
Quarter: 2005Q2

REPORT INFORMATION
  Report Type: 
  Country: None (occurrence: None)
  Receive Date: 20050523
  Receipt Date: 20040706
  Transmission Date: 20051028
  Serious: Yes (Other)
  Sender: FDA-Public Use
  Company Number: PHEH2004US07297

PATIENT
  Age: 71 Year
  Sex: Male
  Weight: 82 kg

DRUGS (23)
  1. ZOMETA [Suspect]
     Dosage: MONTHLY
     Route: 042
     Dates: start: 20030301, end: 20040301
  2. KETOCONAZOLE [Concomitant]
     Dosage: 200MG Q8H
  3. HYDROCORTISONE [Concomitant]
     Dosage: 30MG QD
  4. ACTIGALL [Concomitant]
     Dosage: 300 MG BID
  5. ESTRADERM [Concomitant]
     Dosage: 0.05 BIW
  6. DOSTINEX [Concomitant]
     Dosage: 0.5MG BIW
  7. CELEBREX [Concomitant]
     Dosage: 200MG BID
  8. STARLIX [Concomitant]
     Dosage: 120MG TID
  9. AMARYL [Concomitant]
     Dosage: UNK HS
  10. DOXYCYCLINE [Concomitant]
     Dosage: 50MG QHS
  11. CALCITRIOL [Concomitant]
     Dosage: 0.5MCG HS
  12. ZOLADEX [Concomitant]
     Dosage: Q3MO
  13. LUPRON [Concomitant]
  14. CASODEX [Concomitant]
     Dosage: 50MG QD
  15. AVANDIA [Concomitant]
  16. PRILOSEC [Concomitant]
     Dosage: UNK, UNK
     Dates: start: 20021107
  17. LIPITOR /NET/ [Concomitant]
     Dates: start: 20011107
  18. GLUCOPHAGE [Concomitant]
     Dates: start: 20020703
  19. PROSCAR [Concomitant]
     Dates: start: 20020703
  20. HERBAL EXTRACTS NOS [Concomitant]
  21. VIT C TAB [Concomitant]
  22. ASPIRIN [Concomitant]
  23. AREDIA [Suspect]
     Dosage: UNK, UNK
     Dates: start: 20010620, end: 20021101

REACTIONS (29)
  - ABSCESS JAW [None]
  - ARTERIOSCLEROSIS [None]
  - ASEPTIC NECROSIS BONE [None]
  - ASTHENIA [None]
  - BONE DEBRIDEMENT [None]
  - BONE DISORDER [None]
  - COUGH [None]
  - DEPRESSION [None]
  - DIARRHOEA [None]
  - DIZZINESS [None]
  - DYSPNOEA [None]
  - ENDODONTIC PROCEDURE [None]
  - ERECTILE DYSFUNCTION [None]
  - EXCESSIVE GRANULATION TISSUE [None]
  - EYE PRURITUS [None]
  - FATIGUE [None]
  - FISTULA [None]
  - GYNAECOMASTIA [None]
  - HYPOGONADISM MALE [None]
  - IMPAIRED HEALING [None]
  - MOUTH ULCERATION [None]
  - NO THERAPEUTIC RESPONSE [None]
  - OSTEOMYELITIS [None]
  - OSTEONECROSIS [None]
  - PAIN IN JAW [None]
  - PHARYNGOLARYNGEAL PAIN [None]
  - PLEURAL EFFUSION [None]
  - PRIMARY SEQUESTRUM [None]
  - RHINORRHOEA [None]
